FAERS Safety Report 15481647 (Version 1)
Quarter: 2018Q4

REPORT INFORMATION
  Report Type: Spontaneous
  Country: IT (occurrence: IT)
  Receive Date: 20181010
  Receipt Date: 20181010
  Transmission Date: 20190205
  Serious: Yes (Death, Other)
  Sender: FDA-Public Use
  Company Number: IT-ACCORD-073186

PATIENT
  Age: 69 Year
  Sex: Female
  Weight: 57 kg

DRUGS (10)
  1. CAPECITABINE ACCORD [Suspect]
     Active Substance: CAPECITABINE
     Indication: GALLBLADDER CANCER
     Dates: start: 20171113
  2. ZOFRAN [Concomitant]
     Active Substance: ONDANSETRON HYDROCHLORIDE
  3. BISOPROLOL [Concomitant]
     Active Substance: BISOPROLOL
  4. ISOSORBIDE. [Concomitant]
     Active Substance: ISOSORBIDE
  5. LUKASM [Concomitant]
  6. OMEPRAZEN [Concomitant]
     Active Substance: OMEPRAZOLE
  7. PLAUNAC [Concomitant]
     Active Substance: OLMESARTAN MEDOXOMIL
  8. INEGY [Concomitant]
     Active Substance: EZETIMIBE\SIMVASTATIN
  9. ACETYLSALICYLIC ACID [Concomitant]
     Active Substance: ASPIRIN
  10. LEVOPRAID [Concomitant]

REACTIONS (2)
  - Mucosal inflammation [Fatal]
  - Haematotoxicity [Fatal]

NARRATIVE: CASE EVENT DATE: 20171122
